FAERS Safety Report 12237565 (Version 1)
Quarter: 2016Q2

REPORT INFORMATION
  Report Type: Spontaneous
  Country: US (occurrence: US)
  Receive Date: 20160405
  Receipt Date: 20160405
  Transmission Date: 20160815
  Serious: No
  Sender: FDA-Public Use
  Company Number: US-WATSON-2015-10413

PATIENT
  Sex: Male

DRUGS (1)
  1. NATEGLINIDE (WATSON LABORATORIES) [Suspect]
     Active Substance: NATEGLINIDE
     Indication: TYPE 2 DIABETES MELLITUS
     Dosage: UNK
     Route: 048
     Dates: start: 20150507

REACTIONS (1)
  - Drug ineffective [Recovered/Resolved]
